FAERS Safety Report 15285523 (Version 1)
Quarter: 2018Q3

REPORT INFORMATION
  Report Type: Spontaneous
  Country: GB (occurrence: GB)
  Receive Date: 20180816
  Receipt Date: 20180816
  Transmission Date: 20181010
  Serious: Yes (Hospitalization)
  Sender: FDA-Public Use
  Company Number: GB-TEVA-2018-GB-942829

PATIENT
  Age: 27 Year
  Sex: Female
  Weight: 53 kg

DRUGS (2)
  1. LAMOTRIGINE. [Suspect]
     Active Substance: LAMOTRIGINE
     Indication: BORDERLINE PERSONALITY DISORDER
     Dosage: 25 MILLIGRAM DAILY; STARTED AT 25MG ONCE DAILY, RECENTLY INCREASED TO 75MG ONCE DAILY
     Route: 048
     Dates: start: 20180608
  2. LAMOTRIGINE. [Suspect]
     Active Substance: LAMOTRIGINE
     Dosage: STARTED AT 25MG ONCE DAILY, RECENTLY INCREASED TO 75MG ONCE DAILY
     Route: 048

REACTIONS (1)
  - Rash morbilliform [Not Recovered/Not Resolved]
